FAERS Safety Report 5215874-4 (Version None)
Quarter: 2007Q1

REPORT INFORMATION
  Report Type: 
  Country: None (occurrence: None)
  Receive Date: 20070123
  Receipt Date: 20070118
  Transmission Date: 20070707
  Serious: Yes (Life-Threatening)
  Sender: FDA-Public Use
  Company Number: 2007UW01095

PATIENT
  Sex: Female

DRUGS (3)
  1. SEROQUEL [Suspect]
     Dosage: MANIA STARTER PACK
     Route: 048
  2. COUMADIN [Suspect]
     Indication: ANTICOAGULANT THERAPY
  3. SSRI [Concomitant]

REACTIONS (2)
  - COAGULATION TIME PROLONGED [None]
  - SUICIDAL IDEATION [None]
